FAERS Safety Report 25401485 (Version 2)
Quarter: 2025Q2

REPORT INFORMATION
  Report Type: Spontaneous
  Country: GB (occurrence: GB)
  Receive Date: 20250605
  Receipt Date: 20250616
  Transmission Date: 20250716
  Serious: Yes (Other)
  Sender: GALPHARM INTERNATIONAL
  Company Number: None

PATIENT
  Age: 21 Year
  Sex: Female

DRUGS (3)
  1. NAPROXEN [Suspect]
     Active Substance: NAPROXEN
     Indication: Product used for unknown indication
     Route: 065
     Dates: start: 20250305, end: 20250310
  2. SUMATRIPTAN [Concomitant]
     Active Substance: SUMATRIPTAN
     Indication: Migraine
     Dosage: TAKE ONE TABLET FOR MIGRAINE ATTACK.
     Route: 065
     Dates: start: 20250303
  3. FEXOFENADINE [Concomitant]
     Active Substance: FEXOFENADINE HYDROCHLORIDE
     Indication: Product used for unknown indication
     Dosage: ONE TO BE TAKEN EACH DAY
     Route: 065
     Dates: start: 20250310

REACTIONS (2)
  - Lip swelling [Recovering/Resolving]
  - Swollen tongue [Unknown]

NARRATIVE: CASE EVENT DATE: 20250309
